FAERS Safety Report 6686153-3 (Version None)
Quarter: 2010Q2

REPORT INFORMATION
  Report Type: 
  Country: None (occurrence: None)
  Receive Date: 20100419
  Receipt Date: 20100407
  Transmission Date: 20101027
  Serious: Yes (Hospitalization)
  Sender: FDA-Public Use
  Company Number: PHHY2010HU21616

PATIENT
  Age: 89 Year
  Sex: Female

DRUGS (1)
  1. VAA489A VAL_AML+TAB [Suspect]
     Indication: HYPERTENSION
     Dosage: UNK, (80/5 MG)
     Route: 048

REACTIONS (1)
  - FEMORAL NECK FRACTURE [None]
